FAERS Safety Report 15725781 (Version 1)
Quarter: 2018Q4

REPORT INFORMATION
  Report Type: Spontaneous
  Country: US (occurrence: US)
  Receive Date: 20181216
  Receipt Date: 20181216
  Transmission Date: 20190205
  Serious: No
  Sender: FDA-Public Use
  Company Number: US-009507513-1811USA008225

PATIENT
  Age: 71 Year
  Sex: Male

DRUGS (1)
  1. ZETIA [Suspect]
     Active Substance: EZETIMIBE
     Dosage: A HALF OF A 10MG TABLET ONCE DAILY (ALSO REPORTED AS 1 0.5 TIMES PER DAY)
     Route: 048
     Dates: start: 201809, end: 20181115

REACTIONS (5)
  - Rash [Not Recovered/Not Resolved]
  - Diarrhoea [Unknown]
  - Insomnia [Not Recovered/Not Resolved]
  - Incorrect dose administered [Unknown]
  - Rosacea [Unknown]

NARRATIVE: CASE EVENT DATE: 2018
